FAERS Safety Report 21058015 (Version 1)
Quarter: 2022Q3

REPORT INFORMATION
  Report Type: Spontaneous
  Country: US (occurrence: None)
  Receive Date: 20220707
  Receipt Date: 20220707
  Transmission Date: 20221026
  Serious: No
  Sender: FDA-Public Use
  Company Number: None

PATIENT
  Age: 64 Year
  Sex: Female

DRUGS (1)
  1. PROLIA [Suspect]
     Active Substance: DENOSUMAB
     Indication: Osteoporosis
     Dosage: 60MG  EVERY 6 MONTHS SUBCUTANEOUSLY?
     Route: 058
     Dates: start: 202205, end: 202205

REACTIONS (3)
  - Pain in extremity [None]
  - Myalgia [None]
  - Thrombosis [None]

NARRATIVE: CASE EVENT DATE: 20220501
